FAERS Safety Report 6271319-7 (Version None)
Quarter: 2009Q3

REPORT INFORMATION
  Report Type: 
  Country: None (occurrence: None)
  Receive Date: 20090717
  Receipt Date: 20090707
  Transmission Date: 20100115
  Serious: Yes (Hospitalization)
  Sender: FDA-Public Use
  Company Number: US-JNJFOC-20090505354

PATIENT
  Sex: Female

DRUGS (6)
  1. REMICADE [Suspect]
     Route: 042
  2. REMICADE [Suspect]
     Route: 042
  3. REMICADE [Suspect]
     Route: 042
  4. REMICADE [Suspect]
     Indication: CROHN'S DISEASE
     Route: 042
  5. BENADRYL [Concomitant]
     Indication: PREMEDICATION
     Route: 042
  6. FENTANYL-100 [Concomitant]
     Indication: PREMEDICATION
     Route: 042

REACTIONS (8)
  - ABDOMINAL PAIN UPPER [None]
  - ANGINA PECTORIS [None]
  - ANXIETY [None]
  - BACK PAIN [None]
  - CHEST DISCOMFORT [None]
  - CORONARY ARTERIAL STENT INSERTION [None]
  - DYSPNOEA [None]
  - TREMOR [None]
